FAERS Safety Report 10006473 (Version 1)
Quarter: 2014Q1

REPORT INFORMATION
  Report Type: Report from Study
  Country: AR (occurrence: AR)
  Receive Date: 20140313
  Receipt Date: 20140313
  Transmission Date: 20141002
  Serious: Yes (Death, Other)
  Sender: FDA-Public Use
  Company Number: PHHY2014AR030744

PATIENT
  Sex: Male

DRUGS (1)
  1. EXFORGE [Suspect]
     Dosage: 1 DF (160/5MG) DAILY
     Route: 048

REACTIONS (1)
  - Hepatic cancer [Fatal]
